FAERS Safety Report 25139137 (Version 1)
Quarter: 2025Q1

REPORT INFORMATION
  Report Type: Spontaneous
  Country: GB (occurrence: GB)
  Receive Date: 20250331
  Receipt Date: 20250331
  Transmission Date: 20250408
  Serious: Yes (Other)
  Sender: AUROBINDO
  Company Number: GB-MHRA-MED-202503181203537080-RJDQN

PATIENT
  Age: 55 Year
  Sex: Female
  Weight: 103 kg

DRUGS (1)
  1. AMLODIPINE [Suspect]
     Active Substance: AMLODIPINE BESYLATE
     Indication: Hypertension
     Route: 065
     Dates: end: 20250317

REACTIONS (1)
  - Joint swelling [Not Recovered/Not Resolved]
